FAERS Safety Report 9242081 (Version 2)
Quarter: 2013Q2

REPORT INFORMATION
  Report Type: Report from Study
  Country: CA (occurrence: CA)
  Receive Date: 20130419
  Receipt Date: 20130506
  Transmission Date: 20140414
  Serious: Yes (Other)
  Sender: FDA-Public Use
  Company Number: CA-ROCHE-1178597

PATIENT
  Age: 71 Year
  Sex: Female
  Weight: 62 kg

DRUGS (8)
  1. ACTEMRA [Suspect]
     Indication: RHEUMATOID ARTHRITIS
     Route: 042
     Dates: start: 20110427
  2. ACTEMRA [Suspect]
     Route: 042
     Dates: start: 20120620
  3. METHOTREXATE [Concomitant]
     Indication: HYPERTENSION
  4. COVERSYL [Concomitant]
  5. EVISTA [Concomitant]
  6. ZANTAC [Concomitant]
  7. LIPITOR [Concomitant]
  8. FOLIC ACID [Concomitant]

REACTIONS (4)
  - Skin cancer [Unknown]
  - Hernia [Not Recovered/Not Resolved]
  - Heart rate increased [Unknown]
  - Blood pressure decreased [Unknown]
